FAERS Safety Report 22295953 (Version 1)
Quarter: 2023Q2

REPORT INFORMATION
  Report Type: Report from Study
  Country: DE (occurrence: DE)
  Receive Date: 20230508
  Receipt Date: 20230508
  Transmission Date: 20230722
  Serious: Yes (Death, Hospitalization)
  Sender: FDA-Public Use
  Company Number: DE-AXIONOVO-020-BENDAMUSTIN-AXIOS_2023

PATIENT
  Age: 81 Year
  Sex: Female

DRUGS (2)
  1. BENDAMUSTINE HYDROCHLORIDE [Suspect]
     Active Substance: BENDAMUSTINE HYDROCHLORIDE
     Indication: Product used for unknown indication
     Dosage: 155 MILLIGRAM
     Route: 042
     Dates: start: 20211125, end: 20220217
  2. RITUXIMAB [Suspect]
     Active Substance: RITUXIMAB
     Indication: Product used for unknown indication
     Dosage: 650 MILLIGRAM
     Route: 065
     Dates: start: 20211124, end: 20220216

REACTIONS (2)
  - Coronavirus infection [Fatal]
  - Immunosuppression [Fatal]

NARRATIVE: CASE EVENT DATE: 20220228
